FAERS Safety Report 8820051 (Version 2)
Quarter: 2012Q4

REPORT INFORMATION
  Report Type: 
  Country: DK (occurrence: DK)
  Receive Date: 20121002
  Receipt Date: 20121123
  Transmission Date: 20130627
  Serious: Yes (Hospitalization)
  Sender: FDA-Public Use
  Company Number: PHHY2012DK084614

PATIENT
  Age: 30 Year
  Sex: Female
  Weight: 55 kg

DRUGS (19)
  1. ACLASTA [Suspect]
     Indication: OSTEOPOROSIS
     Dosage: 5 mg/ 100 ml, yearly
     Route: 042
     Dates: start: 20120918
  2. AQUADEKS [Concomitant]
     Indication: CYSTIC FIBROSIS
     Dates: start: 2010
  3. AZITHROMYCIN [Concomitant]
     Indication: CYSTIC FIBROSIS
     Dates: start: 2008
  4. CALCICHEW [Concomitant]
     Indication: OSTEOPOROSIS
     Dates: start: 2010
  5. CELLCEPT [Concomitant]
     Indication: LUNG TRANSPLANT
     Dates: start: 2011
  6. CREON [Concomitant]
     Indication: CYSTIC FIBROSIS
     Dates: start: 2008
  7. MABLET [Concomitant]
     Indication: HYPOMAGNESAEMIA
     Dates: start: 2011
  8. SODIUM CHLORIDE [Concomitant]
     Indication: HYPONATRAEMIA
     Dates: start: 2011
  9. OMEPRAZOL [Concomitant]
     Indication: GASTROOESOPHAGEAL REFLUX DISEASE
     Dates: start: 2011
  10. PREDNISOLON [Concomitant]
     Indication: LUNG TRANSPLANT
     Dates: start: 2011
  11. PROGRAF [Concomitant]
     Indication: LUNG TRANSPLANT
     Dates: start: 2011
  12. PROMIXIN [Concomitant]
     Indication: CYSTIC FIBROSIS
     Dates: start: 2011
  13. SELO-ZOK [Concomitant]
     Indication: TACHYCARDIA
     Dates: start: 2009
  14. SULFAMETOXAZOL MED TRIMETOPRIM [Concomitant]
     Indication: LUNG TRANSPLANT
     Dates: start: 2011
  15. TRISEQUENS [Concomitant]
     Indication: CYSTIC FIBROSIS
     Dates: start: 2009
  16. CHOLECALCIFEROL [Concomitant]
     Indication: OSTEOPOROSIS
     Dates: start: 2011
  17. IMIGRAN [Concomitant]
     Indication: MIGRAINE
     Dates: start: 2011
  18. NASONEX [Concomitant]
     Indication: CYSTIC FIBROSIS
     Dates: start: 2011
  19. PRIMPERAN [Concomitant]
     Indication: NAUSEA
     Dates: start: 2011

REACTIONS (4)
  - Leukopenia [Recovering/Resolving]
  - Hypomagnesaemia [Recovering/Resolving]
  - Nausea [Recovered/Resolved]
  - Vomiting [Recovered/Resolved]
